FAERS Safety Report 7973116-0 (Version None)
Quarter: 2011Q4

REPORT INFORMATION
  Report Type: 
  Country: None (occurrence: None)
  Receive Date: 20111213
  Receipt Date: 20111209
  Transmission Date: 20120403
  Serious: Yes (Other)
  Sender: FDA-Public Use
  Company Number: FR-AMGEN-FRASP2011065048

PATIENT
  Age: 69 Year
  Sex: Female

DRUGS (1)
  1. NPLATE [Suspect]
     Indication: IDIOPATHIC THROMBOCYTOPENIC PURPURA
     Dosage: UNK

REACTIONS (5)
  - MYELOFIBROSIS [None]
  - PLATELET COUNT ABNORMAL [None]
  - RETICULIN INCREASED [None]
  - THROMBOCYTOPENIA [None]
  - PLATELET COUNT DECREASED [None]
